FAERS Safety Report 13038886 (Version 1)
Quarter: 2016Q4

REPORT INFORMATION
  Report Type: Spontaneous
  Country: US (occurrence: US)
  Receive Date: 20161219
  Receipt Date: 20161219
  Transmission Date: 20170207
  Serious: No
  Sender: FDA-Public Use
  Company Number: US-PAR PHARMACEUTICAL, INC-2016SCPR016058

PATIENT
  Sex: Female

DRUGS (1)
  1. APLISOL [Suspect]
     Active Substance: TUBERCULIN PURIFIED PROTEIN DERIVATIVE
     Dosage: 0.5 ML, SINGLE
     Route: 030

REACTIONS (4)
  - Incorrect route of drug administration [Unknown]
  - Incorrect dose administered [Unknown]
  - No adverse event [Unknown]
  - Wrong drug administered [Unknown]
